FAERS Safety Report 8577234-8 (Version None)
Quarter: 2012Q3

REPORT INFORMATION
  Report Type: 
  Country: None (occurrence: None)
  Receive Date: 20120807
  Receipt Date: 20120801
  Transmission Date: 20120928
  Serious: No
  Sender: FDA-Public Use
  Company Number: US-009507513-1208USA000154

PATIENT

DRUGS (3)
  1. REBETOL [Suspect]
     Indication: HEPATITIS C
     Dosage: UNK
     Dates: start: 20120713
  2. ZOFRAN [Concomitant]
     Dosage: UNK
  3. PEG-INTRON [Suspect]
     Indication: HEPATITIS C
     Dosage: 120 MICROGRAM, QW
     Dates: start: 20120713

REACTIONS (9)
  - CHILLS [None]
  - FATIGUE [None]
  - URTICARIA [None]
  - WEIGHT DECREASED [None]
  - VOMITING [None]
  - DECREASED APPETITE [None]
  - NAUSEA [None]
  - PRURITUS [None]
  - ASTHENIA [None]
